FAERS Safety Report 6181411-3 (Version None)
Quarter: 2009Q2

REPORT INFORMATION
  Report Type: 
  Country: None (occurrence: None)
  Receive Date: 20090505
  Receipt Date: 20090505
  Transmission Date: 20091009
  Serious: Yes (Other)
  Sender: FDA-Public Use
  Company Number: None

PATIENT
  Age: 31 Year
  Sex: Female

DRUGS (3)
  1. TRUVADA [Suspect]
     Indication: HIV INFECTION
     Dosage: 500MG ONCE DAILY ORAL
     Route: 048
     Dates: start: 20071126, end: 20090119
  2. LOPINAVIR AND RITONAVIR [Suspect]
     Indication: HIV INFECTION
     Dosage: 500MG TWICE DAILY ORAL
     Route: 048
     Dates: start: 20071126, end: 20090409
  3. COMBIVIR [Concomitant]

REACTIONS (6)
  - AMNIOTIC FLUID VOLUME DECREASED [None]
  - DRUG EXPOSURE DURING PREGNANCY [None]
  - HAEMOGLOBIN DECREASED [None]
  - IMMINENT ABORTION [None]
  - PREGNANCY [None]
  - RHESUS ANTIBODIES POSITIVE [None]
